FAERS Safety Report 7537761-9 (Version None)
Quarter: 2011Q2

REPORT INFORMATION
  Report Type: 
  Country: None (occurrence: None)
  Receive Date: 20110609
  Receipt Date: 20110604
  Transmission Date: 20111010
  Serious: Yes (Hospitalization, Other)
  Sender: FDA-Public Use
  Company Number: CA-ABBOTT-11P-028-0730139-00

PATIENT
  Sex: Female
  Weight: 59.02 kg

DRUGS (7)
  1. VITAMIN B-12 [Concomitant]
     Indication: VITAMIN SUPPLEMENTATION
     Route: 058
     Dates: start: 20100101
  2. METHOTREXATE [Concomitant]
     Indication: PSORIASIS
  3. MORPHINE [Concomitant]
     Indication: PAIN
     Route: 048
     Dates: start: 20100101
  4. HUMIRA [Suspect]
     Indication: COLITIS ULCERATIVE
     Route: 058
     Dates: start: 20090723, end: 20110201
  5. METHOTREXATE [Concomitant]
     Indication: COLITIS ULCERATIVE
     Route: 048
     Dates: end: 20110101
  6. METHOTREXATE [Concomitant]
     Indication: PSORIATIC ARTHROPATHY
  7. FOLIC ACID [Concomitant]
     Indication: VITAMIN SUPPLEMENTATION
     Dates: end: 20110201

REACTIONS (4)
  - ABSCESS [None]
  - POST PROCEDURAL COMPLICATION [None]
  - ILEOSTOMY [None]
  - DRUG INEFFECTIVE [None]
